FAERS Safety Report 22330502 (Version 1)
Quarter: 2023Q2

REPORT INFORMATION
  Report Type: Spontaneous
  Country: US (occurrence: None)
  Receive Date: 20230517
  Receipt Date: 20230517
  Transmission Date: 20230722
  Serious: No
  Sender: FDA-Public Use
  Company Number: US-ROCHE-3084980

PATIENT
  Age: 4 Year
  Sex: Female
  Weight: 19.976 kg

DRUGS (11)
  1. ACTEMRA [Suspect]
     Active Substance: TOCILIZUMAB
     Indication: Morphoea
     Route: 058
  2. ACTEMRA [Suspect]
     Active Substance: TOCILIZUMAB
  3. ACTEMRA [Suspect]
     Active Substance: TOCILIZUMAB
  4. ACTEMRA [Suspect]
     Active Substance: TOCILIZUMAB
     Indication: Progressive facial hemiatrophy
  5. ACTEMRA [Suspect]
     Active Substance: TOCILIZUMAB
  6. ACTEMRA [Suspect]
     Active Substance: TOCILIZUMAB
  7. CELLCEPT [Suspect]
     Active Substance: MYCOPHENOLATE MOFETIL
     Indication: Product used for unknown indication
     Route: 065
  8. METHOTREXATE [Concomitant]
     Active Substance: METHOTREXATE
     Indication: Morphoea
     Dosage: 60 UNITS
     Dates: start: 2020
  9. METHOTREXATE [Concomitant]
     Active Substance: METHOTREXATE
     Indication: Progressive facial hemiatrophy
  10. SOLU-MEDROL [Concomitant]
     Active Substance: METHYLPREDNISOLONE SODIUM SUCCINATE
     Indication: Morphoea
     Dates: start: 20220418, end: 20220420
  11. SOLU-MEDROL [Concomitant]
     Active Substance: METHYLPREDNISOLONE SODIUM SUCCINATE
     Indication: Progressive facial hemiatrophy

REACTIONS (3)
  - Off label use [Unknown]
  - Product storage error [Unknown]
  - No adverse event [Unknown]

NARRATIVE: CASE EVENT DATE: 20220422
